FAERS Safety Report 10102662 (Version 3)
Quarter: 2014Q2

REPORT INFORMATION
  Report Type: Spontaneous
  Country: BR (occurrence: BR)
  Receive Date: 20140424
  Receipt Date: 20140505
  Transmission Date: 20141212
  Serious: Yes (Other)
  Sender: FDA-Public Use
  Company Number: BR-GLAXOSMITHKLINE-A0777627A

PATIENT
  Age: 53 Year
  Sex: Male
  Weight: 75 kg

DRUGS (2)
  1. NIQUITIN 21MG [Suspect]
     Indication: SMOKING CESSATION THERAPY
     Route: 062
     Dates: start: 2007
  2. NIQUITIN CQ 2MG LOZENGE, MINT [Suspect]
     Indication: SMOKING CESSATION THERAPY
     Dosage: 2MG VARIABLE DOSE
     Route: 002
     Dates: start: 201204

REACTIONS (7)
  - Drug dependence [Recovering/Resolving]
  - Drug administration error [Unknown]
  - Intentional product misuse [Unknown]
  - Nicotine dependence [Recovering/Resolving]
  - Drug ineffective [Unknown]
  - Nicotine dependence [Recovered/Resolved]
  - Withdrawal syndrome [Not Recovered/Not Resolved]
